FAERS Safety Report 23768851 (Version 5)
Quarter: 2024Q4

REPORT INFORMATION
  Report Type: Spontaneous
  Country: US (occurrence: US)
  Receive Date: 20240422
  Receipt Date: 20241007
  Transmission Date: 20250115
  Serious: No
  Sender: BIOGEN
  Company Number: US-BIOGEN-2024BI01254638

PATIENT
  Age: 39 Year
  Sex: Female

DRUGS (2)
  1. TYSABRI [Suspect]
     Active Substance: NATALIZUMAB
     Indication: Multiple sclerosis
     Route: 050
     Dates: start: 20120827
  2. TYSABRI [Suspect]
     Active Substance: NATALIZUMAB
     Route: 050
     Dates: start: 20090114, end: 20120719

REACTIONS (15)
  - Product dose omission issue [Not Recovered/Not Resolved]
  - Multiple sclerosis [Unknown]
  - Illness [Unknown]
  - Neck pain [Unknown]
  - Emotional disorder [Unknown]
  - Mental disorder [Unknown]
  - Ear infection [Unknown]
  - Fungal infection [Unknown]
  - Gastrointestinal disorder [Unknown]
  - Loss of control of legs [Unknown]
  - Peroneal nerve palsy [Unknown]
  - Fall [Recovered/Resolved]
  - Headache [Unknown]
  - Pyrexia [Unknown]
  - Fatigue [Unknown]

NARRATIVE: CASE EVENT DATE: 20240912
